FAERS Safety Report 6550766-X (Version None)
Quarter: 2010Q1

REPORT INFORMATION
  Report Type: 
  Country: None (occurrence: None)
  Receive Date: 20100125
  Receipt Date: 20100119
  Transmission Date: 20100710
  Serious: Yes (Death, Disabling)
  Sender: FDA-Public Use
  Company Number: PHHY2009IT57981

PATIENT
  Sex: Female

DRUGS (7)
  1. ZOMETA [Suspect]
     Dosage: 4 MG, QMO
     Route: 065
  2. EUGLUCON [Concomitant]
  3. XANAX [Concomitant]
  4. LANOXIN [Concomitant]
  5. LASIX [Concomitant]
  6. LUVION [Concomitant]
  7. ZYLORIC ^FRESENIUS^ [Concomitant]

REACTIONS (4)
  - DEATH [None]
  - OSTEONECROSIS [None]
  - SEQUESTRECTOMY [None]
  - TOOTH EXTRACTION [None]
